FAERS Safety Report 13075779 (Version 2)
Quarter: 2017Q1

REPORT INFORMATION
  Report Type: Spontaneous
  Country: US (occurrence: US)
  Receive Date: 20161230
  Receipt Date: 20170105
  Transmission Date: 20170428
  Serious: Yes (Death)
  Sender: FDA-Public Use
  Company Number: US-JNJFOC-20161225304

PATIENT

DRUGS (9)
  1. HALOPERIDOL. [Suspect]
     Active Substance: HALOPERIDOL
     Indication: DELIRIUM
     Route: 065
  2. MORPHINE [Suspect]
     Active Substance: MORPHINE
     Indication: DELIRIUM
     Route: 042
  3. MIDAZOLAM [Suspect]
     Active Substance: MIDAZOLAM HYDROCHLORIDE
     Indication: DELIRIUM
     Route: 065
  4. OLANZAPINE. [Suspect]
     Active Substance: OLANZAPINE
     Indication: DELIRIUM
     Dosage: STARTING DOSE OF 5 MG BY MOUTH , MAX 20 MG IF REQUIRED
     Route: 065
  5. PROPOFOL. [Suspect]
     Active Substance: PROPOFOL
     Indication: DELIRIUM
     Dosage: MCG/KG/MIN/DAY
     Route: 065
  6. MORPHINE [Suspect]
     Active Substance: MORPHINE
     Indication: DELIRIUM
     Route: 048
  7. DEXMEDETOMIDINE. [Suspect]
     Active Substance: DEXMEDETOMIDINE
     Indication: DELIRIUM
     Route: 065
  8. QUETIAPINE. [Suspect]
     Active Substance: QUETIAPINE
     Indication: DELIRIUM
     Dosage: STARTING DOSE 25 MG TWICE DAILY BY MOUTH OR VIA NASOGASTRIC TUBE,FOLLOWED INCREASES OF 25 MG/DOSE
     Route: 065
  9. LORAZEPAM. [Suspect]
     Active Substance: LORAZEPAM
     Indication: DELIRIUM
     Route: 065

REACTIONS (5)
  - Hypotension [Unknown]
  - Product use issue [Unknown]
  - Death [Unknown]
  - Somnolence [Unknown]
  - Off label use [Unknown]
